FAERS Safety Report 6312694-4 (Version None)
Quarter: 2009Q3

REPORT INFORMATION
  Report Type: 
  Country: None (occurrence: None)
  Receive Date: 20090814
  Receipt Date: 20090814
  Transmission Date: 20100115
  Serious: No
  Sender: FDA-Public Use
  Company Number: None

PATIENT
  Age: 26 Year
  Sex: Female
  Weight: 70.3075 kg

DRUGS (1)
  1. MONISTAT 1 COMBINATION PACK [Suspect]
     Indication: FUNGAL INFECTION
     Dosage: OVULE INSERT ONE DOSE VAG
     Route: 067
     Dates: start: 20090813, end: 20090813

REACTIONS (7)
  - BURNING SENSATION [None]
  - FEELING ABNORMAL [None]
  - HAEMORRHAGE [None]
  - HEADACHE [None]
  - MUSCLE SPASMS [None]
  - PRURITUS [None]
  - SWELLING [None]
